FAERS Safety Report 20888884 (Version 1)
Quarter: 2022Q2

REPORT INFORMATION
  Report Type: Report from Study
  Country: US (occurrence: US)
  Receive Date: 20220529
  Receipt Date: 20220529
  Transmission Date: 20220721
  Serious: Yes (Disabling, Other)
  Sender: FDA-Public Use
  Company Number: US-BRISTOL-MYERS SQUIBB COMPANY-2022-024012

PATIENT
  Age: 76 Year
  Sex: Female
  Weight: 45.36 kg

DRUGS (1)
  1. REVLIMID [Suspect]
     Active Substance: LENALIDOMIDE
     Indication: Plasma cell myeloma
     Dosage: ADDITIONAL EXPIRATION DATE: 31-MAR-2024
     Route: 048
     Dates: start: 2008

REACTIONS (2)
  - Visual impairment [Unknown]
  - Amnesia [Unknown]
